FAERS Safety Report 13974663 (Version 1)
Quarter: 2017Q3

REPORT INFORMATION
  Report Type: Report from Study
  Country: JP (occurrence: JP)
  Receive Date: 20170915
  Receipt Date: 20170915
  Transmission Date: 20171128
  Serious: Yes (Hospitalization)
  Sender: FDA-Public Use
  Company Number: JP-AMGEN-JPNCT2017091124

PATIENT
  Age: 5 Year
  Sex: Male
  Weight: 17 kg

DRUGS (6)
  1. FILGRASTIM [Suspect]
     Active Substance: FILGRASTIM
     Indication: PRODUCT USED FOR UNKNOWN INDICATION
     Dosage: 77 MUG, UNK
     Route: 065
     Dates: start: 20170310
  2. BAKTAR [Concomitant]
     Active Substance: SULFAMETHOXAZOLE\TRIMETHOPRIM
     Indication: INFECTION PROPHYLAXIS
     Dosage: 1.5 G, BID
     Route: 048
     Dates: start: 20160817
  3. FILGRASTIM [Suspect]
     Active Substance: FILGRASTIM
     Dosage: 77 MUG, UNK
     Route: 065
     Dates: start: 20170428
  4. MEDICON                            /00048102/ [Concomitant]
     Active Substance: DEXTROMETHORPHAN HYDROBROMIDE
     Indication: COUGH
     Dosage: 10 MG, BID
     Route: 048
     Dates: start: 20170602
  5. TECELEUKIN [Concomitant]
     Active Substance: TECELEUKIN
     Dosage: 510000 IU, UNK
     Route: 042
     Dates: start: 20170403
  6. TECELEUKIN [Concomitant]
     Active Substance: TECELEUKIN
     Dosage: 690000 IU, UNK
     Route: 042
     Dates: start: 20170522

REACTIONS (1)
  - Pneumonia [Recovered/Resolved]

NARRATIVE: CASE EVENT DATE: 20170605
